FAERS Safety Report 5762676-6 (Version None)
Quarter: 2008Q2

REPORT INFORMATION
  Report Type: 
  Country: None (occurrence: None)
  Receive Date: 20080609
  Receipt Date: 20080528
  Transmission Date: 20081010
  Serious: Yes (Other)
  Sender: FDA-Public Use
  Company Number: RU-ROCHE-567259

PATIENT
  Age: 5 Year
  Sex: Male

DRUGS (5)
  1. ROCEPHIN [Suspect]
     Indication: CYSTIC FIBROSIS
     Dosage: FORMULATION REPORTED AS: POWDER OF SOLUTION
     Route: 042
     Dates: start: 20080226, end: 20080227
  2. PULMOZYME [Concomitant]
  3. ACETYLCYSTEINE [Concomitant]
  4. PANCREATIN TRIPLE STRENGTH CAP [Concomitant]
  5. URSOSAN [Concomitant]

REACTIONS (3)
  - FLANK PAIN [None]
  - PYREXIA [None]
  - VOMITING [None]
